FAERS Safety Report 24343824 (Version 1)
Quarter: 2024Q3

REPORT INFORMATION
  Report Type: Spontaneous
  Country: US (occurrence: None)
  Receive Date: 20240920
  Receipt Date: 20240920
  Transmission Date: 20241017
  Serious: Yes (Disabling)
  Sender: Public
  Company Number: None

PATIENT
  Age: 51 Year
  Sex: Female
  Weight: 100.8 kg

DRUGS (8)
  1. SULFAMETHOXAZOLE\TRIMETHOPRIM [Suspect]
     Active Substance: SULFAMETHOXAZOLE\TRIMETHOPRIM
     Indication: Staphylococcal infection
     Dosage: 20 TABLETS TWICE A DAY ORAL
     Route: 048
     Dates: start: 20240718, end: 20240730
  2. ZOLOFT [Concomitant]
  3. LEVOTHYROXINE [Concomitant]
     Active Substance: LEVOTHYROXINE\LEVOTHYROXINE SODIUM
  4. XANAX [Concomitant]
     Active Substance: ALPRAZOLAM
  5. Vitamins [Concomitant]
  6. Pepcid [Concomitant]
  7. Digestive enzymes [Concomitant]
  8. FIBER THERAPY (CALCIUM POLYCARBOPHIL) [Concomitant]
     Active Substance: CALCIUM POLYCARBOPHIL

REACTIONS (1)
  - Deafness [None]

NARRATIVE: CASE EVENT DATE: 20240731
